FAERS Safety Report 13276641 (Version 2)
Quarter: 2017Q1

REPORT INFORMATION
  Report Type: Spontaneous
  Country: KR (occurrence: KR)
  Receive Date: 20170228
  Receipt Date: 20170309
  Transmission Date: 20170428
  Serious: Yes (Hospitalization, Other)
  Sender: FDA-Public Use
  Company Number: KR-009507513-1702KOR011071

PATIENT
  Age: 62 Year
  Sex: Male
  Weight: 63.6 kg

DRUGS (27)
  1. CHLORPHENIRAMINE MALEATE. [Concomitant]
     Active Substance: CHLORPHENIRAMINE MALEATE
     Dosage: 4 MG, ONCE
     Route: 042
     Dates: start: 20170110, end: 20170110
  2. ANZATAX (PACLITAXEL) [Concomitant]
     Dosage: 85 MG, ONCE
     Route: 042
     Dates: start: 20170110, end: 20170110
  3. CISPLAN [Concomitant]
     Active Substance: CISPLATIN
     Indication: NON-SMALL CELL LUNG CANCER
     Dosage: 34 MG, ONCE; CONCENTRATION: 50MG/100ML
     Route: 042
     Dates: start: 20161229, end: 20161229
  4. CURAN [Concomitant]
     Active Substance: RANITIDINE HYDROCHLORIDE
     Dosage: 50 MG, ONCE; CONCENTRATION: 50MG/2ML
     Route: 042
     Dates: start: 20170110, end: 20170110
  5. EMEND (FOSAPREPITANT DIMEGLUMINE) [Suspect]
     Active Substance: FOSAPREPITANT DIMEGLUMINE
     Dosage: 150 MG, ONCE
     Route: 042
     Dates: start: 20170110, end: 20170110
  6. EMEND (FOSAPREPITANT DIMEGLUMINE) [Suspect]
     Active Substance: FOSAPREPITANT DIMEGLUMINE
     Dosage: 150 MG, ONCE
     Route: 042
     Dates: start: 20170131, end: 20170131
  7. CISPLAN [Concomitant]
     Active Substance: CISPLATIN
     Dosage: 34 MG, ONCE; CONCENTRATION: 50MG/100ML
     Route: 042
     Dates: start: 20170110, end: 20170110
  8. SANCUSO [Concomitant]
     Active Substance: GRANISETRON
     Indication: PROPHYLAXIS OF NAUSEA AND VOMITING
     Dosage: 1 EA, QD; CONCENTRATION: 80.2X66.6 MM2, ROUTE: REPORTED AS PATCH
     Route: 050
     Dates: start: 20161228, end: 20170103
  9. SANCUSO [Concomitant]
     Active Substance: GRANISETRON
     Dosage: 1 EA, QD; CONCENTRATION: 80.2X66.6 MM2, ROUTE: REPORTED AS PATCH
     Route: 003
     Dates: start: 20170109, end: 20170115
  10. DEXAMETHASONE SODIUM PHOSPHATE. [Concomitant]
     Active Substance: DEXAMETHASONE SODIUM PHOSPHATE
     Indication: PROPHYLAXIS OF NAUSEA AND VOMITING
     Dosage: 12 MG, ONCE; CONCENTRATION: 5 MG/ML
     Route: 042
     Dates: start: 20161229, end: 20161229
  11. OLMETEC [Concomitant]
     Active Substance: OLMESARTAN MEDOXOMIL
     Indication: HYPERTENSION
     Dosage: 20 MG, QD
     Route: 048
     Dates: start: 2007, end: 20170116
  12. CHLORPHENIRAMINE MALEATE. [Concomitant]
     Active Substance: CHLORPHENIRAMINE MALEATE
     Indication: HYPERSENSITIVITY
     Dosage: 4 MG, ONCE
     Route: 042
     Dates: start: 20161229, end: 20161229
  13. LEVOTUSS [Concomitant]
     Active Substance: LEVODROPROPIZINE
     Indication: COUGH
     Dosage: 60 TABLETS, TID
     Route: 048
     Dates: start: 20170109, end: 20170116
  14. ANZATAX (PACLITAXEL) [Concomitant]
     Indication: NON-SMALL CELL LUNG CANCER
     Dosage: 85 MG, ONCE
     Route: 042
     Dates: start: 20161229, end: 20161229
  15. CURAN [Concomitant]
     Active Substance: RANITIDINE HYDROCHLORIDE
     Indication: DYSPEPSIA
     Dosage: 150 MG, BID
     Route: 048
     Dates: start: 20161230, end: 20170101
  16. CENTRUM SILVER ADVANCE (MINERALS (UNSPECIFIED) (+) VITAMINS (UNSPECIFI [Concomitant]
     Indication: PROPHYLAXIS
     Dosage: 1 TABLET, QD
     Route: 048
     Dates: start: 20170109, end: 20170216
  17. MUTERAN [Concomitant]
     Active Substance: ACETYLCYSTEINE
     Indication: PRODUCTIVE COUGH
     Dosage: 200 MG, TID
     Route: 048
     Dates: start: 20170109, end: 20170116
  18. EMEND (FOSAPREPITANT DIMEGLUMINE) [Suspect]
     Active Substance: FOSAPREPITANT DIMEGLUMINE
     Indication: PROPHYLAXIS OF NAUSEA AND VOMITING
     Dosage: 150 MG, ONCE
     Route: 042
     Dates: start: 20161229, end: 20161229
  19. EMEND (FOSAPREPITANT DIMEGLUMINE) [Suspect]
     Active Substance: FOSAPREPITANT DIMEGLUMINE
     Dosage: 150 MG, ONCE
     Route: 042
     Dates: start: 20170117, end: 20170117
  20. DEXAMETHASONE. [Concomitant]
     Active Substance: DEXAMETHASONE
     Indication: PROPHYLAXIS OF NAUSEA AND VOMITING
     Dosage: 4 MG, BID
     Route: 048
     Dates: start: 20161230, end: 20170101
  21. CURAN [Concomitant]
     Active Substance: RANITIDINE HYDROCHLORIDE
     Indication: DYSPEPSIA
     Dosage: 50 MG, ONCE; CONCENTRATION: 50MG/2ML
     Route: 042
     Dates: start: 20161229, end: 20161229
  22. LASIX [Concomitant]
     Active Substance: FUROSEMIDE
     Indication: OEDEMA
     Dosage: 20 MG, ONCE; CONCENTRATION: 20MG/2ML
     Route: 042
     Dates: start: 20161229, end: 20161229
  23. EMEND (FOSAPREPITANT DIMEGLUMINE) [Suspect]
     Active Substance: FOSAPREPITANT DIMEGLUMINE
     Dosage: 150 MG, ONCE
     Route: 042
     Dates: start: 20170124, end: 20170124
  24. LASIX [Concomitant]
     Active Substance: FUROSEMIDE
     Dosage: 20 MG, ONCE; CONCENTRATION: 20MG/2ML
     Route: 042
     Dates: start: 20170110, end: 20170110
  25. CODENAL (CHLORPHENIRAMINE MALEATE (+) DIHYDROCODEINE BITARTRATE (+) GU [Concomitant]
     Indication: COUGH
     Dosage: 15 ML, TID
     Route: 048
     Dates: start: 20170109, end: 20170116
  26. EMEND (FOSAPREPITANT DIMEGLUMINE) [Suspect]
     Active Substance: FOSAPREPITANT DIMEGLUMINE
     Dosage: 150 MG, ONCE
     Route: 042
     Dates: start: 20170207, end: 20170207
  27. DEXAMETHASONE SODIUM PHOSPHATE. [Concomitant]
     Active Substance: DEXAMETHASONE SODIUM PHOSPHATE
     Dosage: 12 MG, ONCE; CONCENTRATION: 5 MG/ML
     Route: 042
     Dates: start: 20170110, end: 20170110

REACTIONS (9)
  - Productive cough [Recovering/Resolving]
  - Diabetes mellitus [Unknown]
  - Pyrexia [Recovered/Resolved]
  - Insomnia [Recovered/Resolved]
  - Radiation oesophagitis [Recovering/Resolving]
  - Hyperthermia [Recovering/Resolving]
  - Dyspepsia [Recovered/Resolved]
  - Hypoaesthesia [Recovering/Resolving]
  - Cough [Recovering/Resolving]

NARRATIVE: CASE EVENT DATE: 20170111
